FAERS Safety Report 9376489 (Version 3)
Quarter: 2013Q3

REPORT INFORMATION
  Report Type: Spontaneous
  Country: JP (occurrence: JP)
  Receive Date: 20130701
  Receipt Date: 20130802
  Transmission Date: 20140515
  Serious: Yes (Other)
  Sender: FDA-Public Use
  Company Number: JP-RANBAXY-2013RR-70723

PATIENT
  Age: 5 Year
  Sex: Female

DRUGS (1)
  1. CLARITH [Suspect]
     Indication: PNEUMONIA
     Dosage: 10 MG/KG/DAY
     Route: 065

REACTIONS (2)
  - Pathogen resistance [Recovered/Resolved]
  - Vomiting [Recovered/Resolved]
